FAERS Safety Report 6401712-0 (Version None)
Quarter: 2009Q4

REPORT INFORMATION
  Report Type: 
  Country: None (occurrence: None)
  Receive Date: 20091009
  Receipt Date: 20091009
  Transmission Date: 20100525
  Serious: No
  Sender: FDA-Public Use
  Company Number: None

PATIENT
  Age: 64 Year
  Sex: Male

DRUGS (1)
  1. SULFAMETHOXAZOLE AND TRIMETHOPRIM [Suspect]
     Dosage: 1 TAB BID PO
     Route: 048
     Dates: start: 20090921, end: 20090921

REACTIONS (13)
  - CHILLS [None]
  - DRUG HYPERSENSITIVITY [None]
  - NAUSEA [None]
  - PALLOR [None]
  - PRODUCTIVE COUGH [None]
  - PYREXIA [None]
  - RASH ERYTHEMATOUS [None]
  - RENAL FAILURE ACUTE [None]
  - SKIN EXFOLIATION [None]
  - SKIN WARM [None]
  - SPUTUM ABNORMAL [None]
  - TUBULOINTERSTITIAL NEPHRITIS [None]
  - VOMITING [None]
